FAERS Safety Report 11509364 (Version 2)
Quarter: 2015Q4

REPORT INFORMATION
  Report Type: Spontaneous
  Country: US (occurrence: US)
  Receive Date: 20150915
  Receipt Date: 20151028
  Transmission Date: 20160304
  Serious: No
  Sender: FDA-Public Use
  Company Number: US-ASTRAZENECA-2015SE86541

PATIENT
  Sex: Male
  Weight: 49.9 kg

DRUGS (2)
  1. SYMBICORT [Suspect]
     Active Substance: BUDESONIDE\FORMOTEROL FUMARATE DIHYDRATE
     Indication: CHRONIC OBSTRUCTIVE PULMONARY DISEASE
     Dosage: 160-4.5 MCG, TWO PUFFS TWICE A DAY
     Route: 055
     Dates: start: 2015
  2. SYMBICORT [Suspect]
     Active Substance: BUDESONIDE\FORMOTEROL FUMARATE DIHYDRATE
     Indication: CHRONIC OBSTRUCTIVE PULMONARY DISEASE
     Dosage: 160-4.5 MCG, TWO PUFFS TWICE A DAY
     Route: 055
     Dates: start: 20150817

REACTIONS (5)
  - Visual acuity reduced [Unknown]
  - Intentional product misuse [Unknown]
  - Device failure [Unknown]
  - Product quality issue [None]
  - Underdose [Unknown]
